FAERS Safety Report 7007656-8 (Version None)
Quarter: 2010Q3

REPORT INFORMATION
  Report Type: 
  Country: None (occurrence: None)
  Receive Date: 20100922
  Receipt Date: 20100916
  Transmission Date: 20110219
  Serious: Yes (Other)
  Sender: FDA-Public Use
  Company Number: JP-PFIZER INC-2010117066

PATIENT

DRUGS (2)
  1. CHAMPIX [Suspect]
     Dosage: UNK
  2. NU LOTAN [Concomitant]
     Dosage: UNK

REACTIONS (2)
  - EYELID OEDEMA [None]
  - FACE OEDEMA [None]
